FAERS Safety Report 23969746 (Version 3)
Quarter: 2024Q4

REPORT INFORMATION
  Report Type: Spontaneous
  Country: US (occurrence: US)
  Receive Date: 20240613
  Receipt Date: 20241218
  Transmission Date: 20250115
  Serious: No
  Sender: BRISTOL-MYERS SQUIBB COMPANY
  Company Number: US-BRISTOL-MYERS SQUIBB COMPANY-2024-095173

PATIENT
  Age: 65 Year
  Sex: Female
  Weight: 71.21 kg

DRUGS (3)
  1. REVLIMID [Suspect]
     Active Substance: LENALIDOMIDE
     Indication: Plasma cell myeloma
     Route: 048
  2. REVLIMID [Suspect]
     Active Substance: LENALIDOMIDE
     Route: 048
  3. REVLIMID [Suspect]
     Active Substance: LENALIDOMIDE
     Route: 048

REACTIONS (5)
  - Rash [Recovering/Resolving]
  - White blood cell count decreased [Unknown]
  - Dizziness [Recovering/Resolving]
  - Respiratory tract congestion [Recovering/Resolving]
  - Hypersensitivity [Recovering/Resolving]
